FAERS Safety Report 23499846 (Version 2)
Quarter: 2024Q4

REPORT INFORMATION
  Report Type: Spontaneous
  Country: AU (occurrence: AU)
  Receive Date: 20240208
  Receipt Date: 20241005
  Transmission Date: 20250115
  Serious: Yes (Hospitalization)
  Sender: AMGEN
  Company Number: AU-AMGEN-AUSSP2024022527

PATIENT
  Sex: Female

DRUGS (11)
  1. TRASTUZUMAB [Suspect]
     Active Substance: TRASTUZUMAB
     Indication: HER2 positive breast cancer
     Dosage: 588 MILLIGRAM, Q3WK
     Route: 042
     Dates: start: 20210401
  2. TRASTUZUMAB [Suspect]
     Active Substance: TRASTUZUMAB
     Dosage: 588 MILLIGRAM, Q3WK
     Route: 042
     Dates: start: 20231212
  3. PEMBROLIZUMAB [Suspect]
     Active Substance: PEMBROLIZUMAB
     Indication: HER2 positive breast cancer
     Dosage: 200 MILLIGRAM, Q3WK
     Route: 042
     Dates: start: 20231212, end: 20231212
  4. TUCATINIB [Suspect]
     Active Substance: TUCATINIB
     Indication: HER2 positive breast cancer
     Dosage: 300 MILLIGRAM, BID
     Route: 048
     Dates: start: 20231212, end: 202312
  5. TUCATINIB [Suspect]
     Active Substance: TUCATINIB
     Dosage: 600 MILLIGRAM, QD
     Route: 048
     Dates: start: 20231229
  6. TUCATINIB [Suspect]
     Active Substance: TUCATINIB
     Dosage: UNK
     Route: 065
     Dates: start: 202402
  7. CAPECITABINE [Suspect]
     Active Substance: CAPECITABINE
     Indication: HER2 positive breast cancer
     Dosage: 1800 MILLIGRAM, QD
     Route: 048
     Dates: start: 20231212
  8. PERTUZUMAB [Suspect]
     Active Substance: PERTUZUMAB
     Indication: Product used for unknown indication
     Dosage: UNK
     Route: 065
     Dates: start: 20210401
  9. PANADOL [Concomitant]
     Active Substance: ACETAMINOPHEN
     Dosage: 2, BID
     Dates: start: 20240101
  10. BETAMETHASONE [Concomitant]
     Active Substance: BETAMETHASONE
     Dosage: UNK
     Route: 061
     Dates: start: 20231224, end: 20231228
  11. LORATADINE [Concomitant]
     Active Substance: LORATADINE
     Dosage: 10 MILLIGRAM
     Route: 048
     Dates: start: 20231224, end: 20231228

REACTIONS (2)
  - Immune-mediated hepatitis [Recovered/Resolved]
  - Off label use [Unknown]

NARRATIVE: CASE EVENT DATE: 20240102
